FAERS Safety Report 6301196-7 (Version None)
Quarter: 2009Q3

REPORT INFORMATION
  Report Type: 
  Country: None (occurrence: None)
  Receive Date: 20090807
  Receipt Date: 20090729
  Transmission Date: 20100115
  Serious: Yes (Hospitalization)
  Sender: FDA-Public Use
  Company Number: US-PFIZER INC-2005117953

PATIENT
  Sex: Female

DRUGS (13)
  1. SUNITINIB MALATE [Suspect]
     Indication: PANCREATIC CARCINOMA
     Dosage: 37.5 MG, 1X/DAY, DAY 1- DAY 14  EVERY 3 WEEKS
     Route: 048
     Dates: start: 20050812, end: 20050821
  2. GEMCITABINE [Suspect]
     Indication: PANCREATIC CARCINOMA
     Dosage: 750 MG/M2, DAY 1 AND 8 EVERY 3 WEEKS, TDD 1140MG
     Route: 042
     Dates: start: 20050811, end: 20050811
  3. ATIVAN [Concomitant]
     Route: 048
     Dates: start: 20050811
  4. CALCIUM CARBONATE [Concomitant]
     Route: 048
     Dates: start: 20050804
  5. COMPAZINE [Concomitant]
     Route: 048
     Dates: start: 20050811
  6. ZOFRAN [Concomitant]
     Route: 048
     Dates: start: 20050811
  7. MULTI-VITAMINS [Concomitant]
     Route: 048
     Dates: start: 20050804
  8. ASCORBIC ACID [Concomitant]
     Route: 048
     Dates: start: 20050804
  9. LOPERAMIDE HYDROCHLORIDE [Concomitant]
     Route: 048
     Dates: start: 20031027
  10. LIPITOR [Concomitant]
     Route: 048
     Dates: start: 20000804
  11. FISH OIL [Concomitant]
     Route: 048
     Dates: start: 20050804
  12. TRIAMTERENE AND HYDROCHLOROTHIAZIDE [Concomitant]
     Route: 048
     Dates: start: 20031027
  13. KCL-RETARD [Concomitant]
     Route: 048
     Dates: start: 20040309

REACTIONS (2)
  - ABSCESS [None]
  - APPENDICITIS [None]
